FAERS Safety Report 22874754 (Version 2)
Quarter: 2024Q1

REPORT INFORMATION
  Report Type: Spontaneous
  Country: BE (occurrence: BE)
  Receive Date: 20230829
  Receipt Date: 20240321
  Transmission Date: 20240409
  Serious: Yes (Hospitalization, Other)
  Sender: FDA-Public Use
  Company Number: BE-STRIDES ARCOLAB LIMITED-2023SP013330

PATIENT
  Age: 73 Year
  Sex: Male

DRUGS (13)
  1. PREDNISOLONE [Suspect]
     Active Substance: PREDNISOLONE
     Indication: Pneumonitis
     Dosage: 1 MILLIGRAM/KILOGRAM PER DAY  (BODY WEIGHT)
     Route: 065
  2. MYCOPHENOLATE MOFETIL [Suspect]
     Active Substance: MYCOPHENOLATE MOFETIL
     Indication: Enteritis
     Dosage: UNK
     Route: 065
  3. MYCOPHENOLATE MOFETIL [Suspect]
     Active Substance: MYCOPHENOLATE MOFETIL
     Indication: Campylobacter infection
  4. METHOTREXATE [Suspect]
     Active Substance: METHOTREXATE
     Indication: Enteritis
     Dosage: UNK
     Route: 065
  5. METHOTREXATE [Suspect]
     Active Substance: METHOTREXATE
     Indication: Campylobacter infection
  6. VEDOLIZUMAB [Suspect]
     Active Substance: VEDOLIZUMAB
     Indication: Enteritis
     Dosage: UNK
     Route: 065
  7. VEDOLIZUMAB [Suspect]
     Active Substance: VEDOLIZUMAB
     Indication: Campylobacter infection
  8. INFLIXIMAB [Suspect]
     Active Substance: INFLIXIMAB
     Indication: Enteritis
     Dosage: 10 MILLIGRAM/KILOGRAM (BODY WEIGHT)
     Route: 065
  9. INFLIXIMAB [Suspect]
     Active Substance: INFLIXIMAB
     Indication: Campylobacter infection
  10. PEMBROLIZUMAB [Suspect]
     Active Substance: PEMBROLIZUMAB
     Indication: Bladder transitional cell carcinoma stage IV
     Dosage: 200 MILLIGRAM, EVERY 3 WEEKS
     Route: 065
  11. AZITHROMYCIN [Suspect]
     Active Substance: AZITHROMYCIN
     Indication: Campylobacter infection
     Dosage: 500 MILLIGRAM PER DAY
     Route: 065
  12. AZITHROMYCIN [Suspect]
     Active Substance: AZITHROMYCIN
     Indication: Immune-mediated enterocolitis
  13. ENFORTUMAB VEDOTIN [Suspect]
     Active Substance: ENFORTUMAB VEDOTIN
     Indication: Bladder transitional cell carcinoma stage IV
     Dosage: 1.25 MILLIGRAM/KILOGRAM (BODY WEIGHT ON DAY ONE AND EIGHT OF A THREE-WEEKLY REGIMEN)
     Route: 065

REACTIONS (7)
  - Enteritis [Unknown]
  - Enterocolitis [Recovered/Resolved]
  - Campylobacter infection [Recovered/Resolved]
  - Sepsis [Unknown]
  - Device related infection [Unknown]
  - Bacterial translocation [Unknown]
  - Drug ineffective for unapproved indication [Unknown]
